FAERS Safety Report 4996252-X (Version None)
Quarter: 2006Q2

REPORT INFORMATION
  Report Type: 
  Country: None (occurrence: None)
  Receive Date: 20060509
  Receipt Date: 20060424
  Transmission Date: 20061013
  Serious: Yes (Hospitalization)
  Sender: FDA-Public Use
  Company Number: PHHO2006DE06551

PATIENT
  Age: 18 Year
  Sex: Male
  Weight: 61.35 kg

DRUGS (1)
  1. EXJADE [Suspect]
     Indication: BLOOD IRON INCREASED

REACTIONS (4)
  - HEART RATE INCREASED [None]
  - HYPERSENSITIVITY [None]
  - PYREXIA [None]
  - RASH [None]
